FAERS Safety Report 8935557 (Version 2)
Quarter: 2013Q2

REPORT INFORMATION
  Report Type: Report from Study
  Country: AU (occurrence: AU)
  Receive Date: 20121130
  Receipt Date: 20130422
  Transmission Date: 20140414
  Serious: Yes (Hospitalization, Other)
  Sender: FDA-Public Use
  Company Number: PHHY2012AU100088

PATIENT
  Age: 26 Year
  Sex: Male

DRUGS (5)
  1. CLOZARIL [Suspect]
     Indication: SCHIZOPHRENIA
     Dosage: 400 MG
     Dates: start: 20091020, end: 20121029
  2. CLOPINE [Suspect]
     Dosage: UNK
  3. FLUOXETINE [Concomitant]
     Indication: ANXIETY
     Dosage: 20 MG, QD (MORNING)
     Dates: start: 201204
  4. RISPERDAL CONSTA [Concomitant]
     Indication: SCHIZOPHRENIA
     Dosage: 25 MG
     Route: 030
     Dates: start: 20091020
  5. OLANZAPINE [Concomitant]
     Indication: SCHIZOPHRENIA
     Dosage: 10 MG (EVENING)
     Route: 048
     Dates: start: 20121102

REACTIONS (5)
  - Mental impairment [Unknown]
  - Schizophrenia, disorganised type [Unknown]
  - Mania [Unknown]
  - Psychotic disorder [Unknown]
  - Neutropenia [Recovered/Resolved]
